FAERS Safety Report 8296008-9 (Version None)
Quarter: 2012Q2

REPORT INFORMATION
  Report Type: 
  Country: None (occurrence: None)
  Receive Date: 20120418
  Receipt Date: 20120410
  Transmission Date: 20120825
  Serious: Yes (Other)
  Sender: FDA-Public Use
  Company Number: GB-ROXANE LABORATORIES, INC.-2012-RO-01033RO

PATIENT

DRUGS (1)
  1. LITHIUM CARBONATE [Suspect]
     Indication: SPINAL CORD INJURY
     Dosage: 500 MG
     Route: 048

REACTIONS (1)
  - ELECTROCARDIOGRAM PR PROLONGATION [None]
